FAERS Safety Report 8992373 (Version 1)
Quarter: 2012Q4

REPORT INFORMATION
  Report Type: 
  Country: GB (occurrence: GB)
  Receive Date: 20121231
  Receipt Date: 20121231
  Transmission Date: 20130627
  Serious: Yes (Other)
  Sender: FDA-Public Use
  Company Number: PHHY2012GB121143

PATIENT
  Age: 18 Year
  Sex: Female

DRUGS (4)
  1. OMEPRAZOLE [Suspect]
     Indication: GASTRITIS
     Dosage: 20 mg
     Route: 048
     Dates: start: 20121116, end: 20121128
  2. FLUOXETINE [Concomitant]
     Dosage: 20 mg, UNK
  3. CYCLIZINE [Concomitant]
     Dosage: 50 mg, UNK
  4. TRAMADOL [Concomitant]
     Dosage: 50 mg, UNK

REACTIONS (1)
  - Aphasia [Recovered/Resolved]
